FAERS Safety Report 25885176 (Version 1)
Quarter: 2025Q4

REPORT INFORMATION
  Report Type: Spontaneous
  Country: US (occurrence: US)
  Receive Date: 20251006
  Receipt Date: 20251006
  Transmission Date: 20260117
  Serious: No
  Sender: SANOFI AVENTIS
  Company Number: US-SA-2025SA291808

PATIENT
  Age: 78 Year
  Sex: Female

DRUGS (1)
  1. FABRAZYME [Suspect]
     Active Substance: AGALSIDASE BETA
     Dosage: 60 MG TOTAL, BIM
     Route: 042

REACTIONS (7)
  - Feeling abnormal [Unknown]
  - Pelvic discomfort [Unknown]
  - Tinnitus [Unknown]
  - Dyspnoea [Unknown]
  - Hypotension [Unknown]
  - Cough [Unknown]
  - Headache [Unknown]
